FAERS Safety Report 6184515-4 (Version None)
Quarter: 2009Q2

REPORT INFORMATION
  Report Type: 
  Country: None (occurrence: None)
  Receive Date: 20090508
  Receipt Date: 20090428
  Transmission Date: 20091009
  Serious: Yes (Death, Hospitalization, Other)
  Sender: FDA-Public Use
  Company Number: FR-AMGEN-UK335859

PATIENT
  Sex: Female

DRUGS (17)
  1. ROMIPLOSTIM [Suspect]
     Indication: IDIOPATHIC THROMBOCYTOPENIC PURPURA
     Route: 058
     Dates: start: 20090212, end: 20090225
  2. ROMIPLOSTIM [Suspect]
     Route: 058
     Dates: start: 20090219
  3. ATARAX [Concomitant]
     Route: 048
     Dates: start: 20090224
  4. AMOXICILLIN [Concomitant]
     Route: 048
     Dates: start: 20090212
  5. LEVOTHYROX [Concomitant]
     Route: 048
     Dates: start: 20090203
  6. TRAMADOL - SLOW RELEASE [Concomitant]
     Route: 048
     Dates: start: 20090126
  7. CALCIDIA [Concomitant]
     Route: 048
     Dates: start: 20081231
  8. ADROVANCE [Concomitant]
     Route: 048
     Dates: start: 20081231
  9. PIASCLEDINE [Concomitant]
     Route: 048
     Dates: start: 20081231
  10. SERESTA [Concomitant]
     Route: 048
     Dates: start: 20090219
  11. ESCITALOPRAM [Concomitant]
     Route: 048
     Dates: start: 20090213
  12. NORMACOL [Concomitant]
     Route: 054
     Dates: start: 20090105
  13. SODIUM CHLORIDE [Concomitant]
     Route: 055
     Dates: start: 20090223
  14. NITROUS OXIDE [Concomitant]
     Route: 055
     Dates: start: 20090105
  15. MICONAZOLE NITRATE [Concomitant]
     Route: 050
     Dates: start: 20090225
  16. DOLIPRANE [Concomitant]
     Route: 048
     Dates: start: 20090126
  17. FORLAX [Concomitant]
     Route: 048
     Dates: start: 20090105

REACTIONS (3)
  - INTESTINAL INFARCTION [None]
  - PHLEBITIS [None]
  - PULMONARY EMBOLISM [None]
